FAERS Safety Report 7878836-4 (Version None)
Quarter: 2011Q4

REPORT INFORMATION
  Report Type: 
  Country: None (occurrence: None)
  Receive Date: 20111024
  Receipt Date: 20110815
  Transmission Date: 20120403
  Serious: Yes (Other)
  Sender: FDA-Public Use
  Company Number: AMAG201100180

PATIENT
  Age: 59 Year
  Sex: Male
  Weight: 111.6 kg

DRUGS (1)
  1. FERAHEME [Suspect]
     Indication: IRON DEFICIENCY ANAEMIA
     Dosage: 180 MG, SINGLE, INTRAVENOUS
     Route: 042
     Dates: start: 20110711, end: 20110711

REACTIONS (7)
  - DYSPHAGIA [None]
  - DYSPNOEA [None]
  - CHEST PAIN [None]
  - MUSCLE SPASMS [None]
  - BACK PAIN [None]
  - HYPOTENSION [None]
  - RASH [None]
